FAERS Safety Report 13459444 (Version 1)
Quarter: 2017Q2

REPORT INFORMATION
  Report Type: Report from Study
  Country: GB (occurrence: GB)
  Receive Date: 20170419
  Receipt Date: 20170419
  Transmission Date: 20170830
  Serious: Yes (Hospitalization, Other)
  Sender: FDA-Public Use
  Company Number: GB-CANTON LABORATORIES, LLC-1065546

PATIENT
  Age: 51 Year
  Sex: Female

DRUGS (7)
  1. AMOXICILLIN. [Suspect]
     Active Substance: AMOXICILLIN
     Route: 048
     Dates: start: 20130307, end: 20130307
  2. LEVOTHYROXINE. [Suspect]
     Active Substance: LEVOTHYROXINE
     Route: 048
     Dates: start: 20130307, end: 20130307
  3. PARACETAMOL [Suspect]
     Active Substance: ACETAMINOPHEN
     Route: 048
     Dates: start: 20130307, end: 20130307
  4. NAPROSYN [Suspect]
     Active Substance: NAPROXEN
     Indication: PAIN
     Route: 048
     Dates: end: 20130307
  5. OMEPRAZOLE. [Suspect]
     Active Substance: OMEPRAZOLE
     Route: 048
     Dates: start: 20170307
  6. CITALOPRAM [Suspect]
     Active Substance: CITALOPRAM HYDROBROMIDE
     Route: 048
     Dates: start: 20130307, end: 20130307
  7. AIN457 (SECUKINUMAB) [Suspect]
     Active Substance: SECUKINUMAB
     Route: 058
     Dates: start: 20121214, end: 20130205

REACTIONS (4)
  - Suicide attempt [Recovering/Resolving]
  - Intentional overdose [None]
  - Intentional overdose [Recovering/Resolving]
  - Partner stress [None]

NARRATIVE: CASE EVENT DATE: 20130307
